FAERS Safety Report 19029077 (Version 2)
Quarter: 2021Q1

REPORT INFORMATION
  Report Type: Spontaneous
  Country: US (occurrence: US)
  Receive Date: 20210318
  Receipt Date: 20210326
  Transmission Date: 20210420
  Serious: Yes (Hospitalization)
  Sender: FDA-Public Use
  Company Number: US-ASTRAZENECA-2021A130650

PATIENT
  Age: 837 Month
  Sex: Female
  Weight: 108.4 kg

DRUGS (5)
  1. BUDESONIDE INHALATION [Suspect]
     Active Substance: BUDESONIDE
     Route: 055
  2. SPIRIVA [Concomitant]
     Active Substance: TIOTROPIUM BROMIDE MONOHYDRATE
     Indication: CHRONIC OBSTRUCTIVE PULMONARY DISEASE
  3. BUDESONIDE AND FORMOTEROL [Suspect]
     Active Substance: BUDESONIDE\FORMOTEROL
     Indication: CHRONIC OBSTRUCTIVE PULMONARY DISEASE
     Dosage: 160/4.5MCG 2 PUFFS TWICE A DAY
     Route: 055
     Dates: start: 20201208
  4. SYMBICORT [Suspect]
     Active Substance: BUDESONIDE\FORMOTEROL FUMARATE DIHYDRATE
     Indication: CHRONIC OBSTRUCTIVE PULMONARY DISEASE
     Dosage: 160MCG/4.5MCG, TWO TIMES A DAY
     Route: 055
  5. ALBUTEROL SULFATE INHALATION AEROSOL [Concomitant]
     Active Substance: ALBUTEROL SULFATE
     Indication: CHRONIC OBSTRUCTIVE PULMONARY DISEASE

REACTIONS (9)
  - Drug ineffective [Unknown]
  - Pneumonia [Unknown]
  - COVID-19 [Recovering/Resolving]
  - Chronic obstructive pulmonary disease [Unknown]
  - Product use issue [Unknown]
  - Device issue [Unknown]
  - Pulmonary function test decreased [Unknown]
  - Intentional device misuse [Unknown]
  - Lung disorder [Unknown]

NARRATIVE: CASE EVENT DATE: 202009
